FAERS Safety Report 20787251 (Version 2)
Quarter: 2022Q2

REPORT INFORMATION
  Report Type: Report from Study
  Country: US (occurrence: US)
  Receive Date: 20220505
  Receipt Date: 20220523
  Transmission Date: 20220721
  Serious: No
  Sender: FDA-Public Use
  Company Number: US-BRISTOL-MYERS SQUIBB COMPANY-2022-018756

PATIENT
  Age: 60 Year
  Sex: Male
  Weight: 104.32 kg

DRUGS (1)
  1. ZEPOSIA [Suspect]
     Active Substance: OZANIMOD HYDROCHLORIDE
     Indication: Colitis ulcerative
     Dosage: DOSE: 0.92 MILLIGRAM, FREQ: ONCE A DAY
     Route: 048
     Dates: start: 202110

REACTIONS (2)
  - Accidental overdose [Unknown]
  - Drug ineffective [Unknown]
